FAERS Safety Report 16217346 (Version 4)
Quarter: 2019Q3

REPORT INFORMATION
  Report Type: Spontaneous
  Country: JP (occurrence: JP)
  Receive Date: 20190419
  Receipt Date: 20190712
  Transmission Date: 20191004
  Serious: Yes (Death, Life-Threatening, Congenital Anomaly, Other)
  Sender: FDA-Public Use
  Company Number: JP-SA-2019SA077093

PATIENT
  Age: 70 Year
  Sex: Male
  Weight: 47 kg

DRUGS (4)
  1. TS-1 [Suspect]
     Active Substance: GIMERACIL\OTERACIL\TEGAFUR
     Indication: GASTRIC CANCER
     Dosage: 50 MG, BID
     Route: 048
     Dates: start: 20170710, end: 20170724
  2. ELPLAT [Suspect]
     Active Substance: OXALIPLATIN
     Indication: GASTRIC CANCER
     Dosage: 120 MG, QD
     Route: 041
     Dates: start: 20170710, end: 20170710
  3. DEXART [Concomitant]
     Active Substance: DEXAMETHASONE SODIUM PHOSPHATE
     Dosage: UNK
     Dates: start: 20170710, end: 20170710
  4. ALOXI [Concomitant]
     Active Substance: PALONOSETRON HYDROCHLORIDE
     Dosage: UNK
     Dates: start: 20170710, end: 20170710

REACTIONS (4)
  - Intestinal obstruction [Fatal]
  - Renal cyst infection [Fatal]
  - Febrile neutropenia [Recovered/Resolved]
  - Septic shock [Fatal]

NARRATIVE: CASE EVENT DATE: 20170725
